FAERS Safety Report 9425810 (Version 2)
Quarter: 2014Q1

REPORT INFORMATION
  Report Type: Spontaneous
  Country: US (occurrence: US)
  Receive Date: 20130729
  Receipt Date: 20140103
  Transmission Date: 20141002
  Serious: Yes (Death, Hospitalization)
  Sender: FDA-Public Use
  Company Number: US-B.I. PHARMACEUTICALS,INC./RIDGEFIELD-2013-BI-22156BP

PATIENT
  Age: 70 Year
  Sex: Male
  Weight: 72.57 kg

DRUGS (4)
  1. PRADAXA [Suspect]
     Indication: ATRIAL FIBRILLATION
     Dosage: 300 MG
     Route: 048
     Dates: start: 20110402, end: 20110810
  2. SOTALOL [Concomitant]
  3. AMLODIPINE BESYLATE [Concomitant]
  4. MICARDIS [Concomitant]

REACTIONS (4)
  - Subdural haematoma [Fatal]
  - Subarachnoid haemorrhage [Unknown]
  - Fall [Unknown]
  - Contusion [Unknown]
